FAERS Safety Report 17444517 (Version 2)
Quarter: 2020Q1

REPORT INFORMATION
  Report Type: Report from Study
  Country: BR (occurrence: BR)
  Receive Date: 20200221
  Receipt Date: 20200228
  Transmission Date: 20200409
  Serious: Yes (Death)
  Sender: FDA-Public Use
  Company Number: BR-ROCHE-2553182

PATIENT
  Age: 77 Year
  Sex: Male
  Weight: 74 kg

DRUGS (4)
  1. BLINDED AFLIBERCEPT [Suspect]
     Active Substance: AFLIBERCEPT
     Indication: NEOVASCULAR AGE-RELATED MACULAR DEGENERATION
     Dosage: ON 14/JAN/2020, AT 12:34 HOURS; MOST RECENT DOSE OF BLINDED AFLIBERCEPT WAS GIVEN.
     Route: 050
     Dates: start: 20191017
  2. RANIBIZUMAB. [Suspect]
     Active Substance: RANIBIZUMAB
     Indication: NEOVASCULAR AGE-RELATED MACULAR DEGENERATION
     Dosage: ON 21/OCT/2019, AT 11:40 HOURS; MOST RECENT DOSE (0.5 MG) OF RANIBIZUMAB IN FELLOW EYE PRIOR TO SAE
     Route: 050
     Dates: start: 20191023
  3. INSULINA NPH [Concomitant]
     Active Substance: INSULIN HUMAN
     Dosage: DOSE: 40 UI AND 130 UI
     Route: 065
     Dates: start: 2013
  4. BLINDED VASCULAR ENDOTHELIAL GROWTH FACTOR INHIBITORS [Suspect]
     Active Substance: FARICIMAB
     Indication: NEOVASCULAR AGE-RELATED MACULAR DEGENERATION
     Dosage: ON 14/JAN/2020, AT 12:34 HOURS; MOST RECENT DOSE OF BLINDED FARICIMAB WAS GIVEN.
     Route: 050
     Dates: start: 20191017

REACTIONS (3)
  - Fall [Fatal]
  - Accident at home [Fatal]
  - Lung perforation [Fatal]

NARRATIVE: CASE EVENT DATE: 20200122
